FAERS Safety Report 13551920 (Version 1)
Quarter: 2017Q2

REPORT INFORMATION
  Report Type: Spontaneous
  Country: FR (occurrence: FR)
  Receive Date: 20170516
  Receipt Date: 20170516
  Transmission Date: 20170830
  Serious: Yes (Hospitalization)
  Sender: FDA-Public Use
  Company Number: FR-ALLERGAN-1719537US

PATIENT
  Age: 70 Year
  Sex: Male

DRUGS (1)
  1. OZURDEX [Suspect]
     Active Substance: DEXAMETHASONE
     Indication: RETINAL DETACHMENT
     Dosage: 0.7 MG, SINGLE
     Route: 031

REACTIONS (2)
  - Panophthalmitis [Recovering/Resolving]
  - Off label use [Unknown]
